FAERS Safety Report 4898216-3 (Version None)
Quarter: 2006Q1

REPORT INFORMATION
  Report Type: 
  Country: None (occurrence: None)
  Receive Date: 20060201
  Receipt Date: 20060130
  Transmission Date: 20060701
  Serious: Yes (Hospitalization)
  Sender: FDA-Public Use
  Company Number: US-MERCK-0601USA03458

PATIENT
  Age: 59 Year
  Sex: Male

DRUGS (2)
  1. VYTORIN [Suspect]
     Indication: BLOOD CHOLESTEROL INCREASED
     Route: 048
     Dates: start: 20040701, end: 20051201
  2. CYMBALTA [Concomitant]
     Route: 065

REACTIONS (2)
  - ADVERSE DRUG REACTION [None]
  - AORTIC ANEURYSM [None]
